FAERS Safety Report 11013397 (Version 2)
Quarter: 2015Q2

REPORT INFORMATION
  Report Type: Spontaneous
  Country: US (occurrence: US)
  Receive Date: 20150411
  Receipt Date: 20150525
  Transmission Date: 20150821
  Serious: No
  Sender: FDA-Public Use
  Company Number: US-JNJFOC-20140715275

PATIENT
  Age: 19 Year
  Sex: Female
  Weight: 65.77 kg

DRUGS (1)
  1. REMICADE [Suspect]
     Active Substance: INFLIXIMAB
     Indication: RHEUMATOID ARTHRITIS
     Dosage: ALSO GIVEN AS 300 MG
     Route: 042
     Dates: start: 201311

REACTIONS (1)
  - Infection [Unknown]

NARRATIVE: CASE EVENT DATE: 20140711
